FAERS Safety Report 18241511 (Version 1)
Quarter: 2020Q3

REPORT INFORMATION
  Report Type: Report from Study
  Country: US (occurrence: US)
  Receive Date: 20200908
  Receipt Date: 20200908
  Transmission Date: 20201103
  Serious: Yes (Hospitalization)
  Sender: FDA-Public Use
  Company Number: US-GLAXOSMITHKLINE-US2020GSK177673

PATIENT
  Age: 49 Year
  Sex: Male
  Weight: 78.91 kg

DRUGS (7)
  1. IPILIMUMAB [Suspect]
     Active Substance: IPILIMUMAB
     Indication: PANCREATIC CARCINOMA
     Dosage: 3 MG/KG (ONCE EVERY 3 WEEKS)
     Route: 042
     Dates: start: 20200730, end: 20200820
  2. HUMALOG KWIKPEN [Concomitant]
     Active Substance: INSULIN LISPRO
     Dosage: UNK, TID ( (100 UNIT/ML SC PEN?INJECTOR)
     Route: 058
  3. LANTUS SOLOSTAR [Concomitant]
     Active Substance: INSULIN GLARGINE
     Dosage: UNK 100 UNIT/ML SC PEN INJECTION, INJECT 14 UNITS SUBCUTANEOUSLY
     Route: 058
  4. PROCHLORPERAZINE. [Concomitant]
     Active Substance: PROCHLORPERAZINE
     Dosage: 10 MG, PRN
     Route: 048
  5. MORPHINE [Concomitant]
     Active Substance: MORPHINE
     Dosage: 30 MG, TID
     Route: 048
  6. PANCRELIPASE. [Concomitant]
     Active Substance: PANCRELIPASE
     Dosage: UNK (12000 38000?60000 UNITS CPEP DR CAPSULE, 1CAPSULE)
     Route: 048
  7. NIRAPARIB [Suspect]
     Active Substance: NIRAPARIB
     Indication: PANCREATIC CARCINOMA
     Dosage: 200 MG, QD
     Route: 048
     Dates: start: 20200730, end: 20200831

REACTIONS (1)
  - Rash morbilliform [Unknown]

NARRATIVE: CASE EVENT DATE: 20200831
